FAERS Safety Report 24014659 (Version 1)
Quarter: 2024Q2

REPORT INFORMATION
  Report Type: Spontaneous
  Country: US (occurrence: None)
  Receive Date: 20240625
  Receipt Date: 20240625
  Transmission Date: 20240716
  Serious: Yes (Other)
  Sender: FDA-Public Use
  Company Number: None

PATIENT
  Age: 27 Year
  Sex: Female

DRUGS (1)
  1. FERRLECIT [Suspect]
     Active Substance: SODIUM FERRIC GLUCONATE COMPLEX
     Indication: Iron deficiency anaemia
     Dosage: 250 MG ONCE INTRAVENOUS
     Route: 042

REACTIONS (4)
  - Arthralgia [None]
  - Urticaria [None]
  - Swelling [None]
  - Infusion related reaction [None]

NARRATIVE: CASE EVENT DATE: 20240618
